FAERS Safety Report 5731315-2 (Version None)
Quarter: 2008Q2

REPORT INFORMATION
  Report Type: 
  Country: None (occurrence: None)
  Receive Date: 20080506
  Receipt Date: 20080502
  Transmission Date: 20081010
  Serious: Yes (Other)
  Sender: FDA-Public Use
  Company Number: A0712913A

PATIENT
  Age: 50 Year
  Sex: Male

DRUGS (1)
  1. SODIUM FLUORIDE TOOTHBRUSH (SODIUM FLUORIDE) (AQUAFRESH) [Suspect]
     Indication: DENTAL DISORDER PROPHYLAXIS
     Dosage: DENTAL
     Route: 004
     Dates: start: 20080218

REACTIONS (4)
  - DRY EYE [None]
  - FACIAL PALSY [None]
  - FEELING HOT [None]
  - HALLUCINATION [None]
